FAERS Safety Report 23308064 (Version 2)
Quarter: 2024Q4

REPORT INFORMATION
  Report Type: Spontaneous
  Country: US (occurrence: US)
  Receive Date: 20231218
  Receipt Date: 20241104
  Transmission Date: 20250115
  Serious: Yes (Death)
  Sender: PERRIGO
  Company Number: US-PERRIGO-23US014493

PATIENT
  Age: 102 Year
  Sex: Male

DRUGS (10)
  1. POLYETHYLENE GLYCOL 3350 [Suspect]
     Active Substance: POLYETHYLENE GLYCOL 3350
     Indication: Medication error
     Dosage: UNK
     Route: 048
  2. AMLODIPINE [Suspect]
     Active Substance: AMLODIPINE BESYLATE
     Indication: Medication error
     Dosage: UNK
     Route: 048
  3. CARVEDILOL [Suspect]
     Active Substance: CARVEDILOL
     Indication: Medication error
     Dosage: UNK
     Route: 048
  4. TAMSULOSIN [Suspect]
     Active Substance: TAMSULOSIN
     Indication: Medication error
     Dosage: UNK
     Route: 048
  5. SALICYLATES NOS [Suspect]
     Active Substance: UNSPECIFIED INGREDIENT
     Indication: Medication error
     Dosage: UNK
     Route: 048
  6. FINASTERIDE [Suspect]
     Active Substance: FINASTERIDE
     Indication: Medication error
     Dosage: UNK
     Route: 048
  7. ISOSORBIDE MONONITRATE [Suspect]
     Active Substance: ISOSORBIDE MONONITRATE
     Indication: Medication error
     Dosage: UNK
     Route: 048
  8. LOSARTAN [Suspect]
     Active Substance: LOSARTAN
     Indication: Medication error
     Dosage: UNK
     Route: 048
  9. VITAMINS NOS [Suspect]
     Active Substance: VITAMINS
     Indication: Medication error
     Dosage: UNK
     Route: 048
  10. SENNA LEAF [Suspect]
     Active Substance: SENNA LEAF
     Indication: Medication error
     Dosage: UNK
     Route: 048

REACTIONS (1)
  - Exposure to toxic agent [Fatal]

NARRATIVE: CASE EVENT DATE: 20220101
